FAERS Safety Report 6877283-1 (Version None)
Quarter: 2010Q3

REPORT INFORMATION
  Report Type: 
  Country: None (occurrence: None)
  Receive Date: 20100719
  Receipt Date: 20100702
  Transmission Date: 20110219
  Serious: Yes (Hospitalization, Other)
  Sender: FDA-Public Use
  Company Number: AECAN201000213

PATIENT
  Age: 55 Year
  Sex: Male
  Weight: 106 kg

DRUGS (2)
  1. GAMUNEX [Suspect]
     Indication: GUILLAIN-BARRE SYNDROME
     Dosage: 200 GM; QD; IV
     Route: 042
     Dates: start: 20100604, end: 20100607
  2. GAMUNEX [Suspect]

REACTIONS (7)
  - BLOOD LACTATE DEHYDROGENASE INCREASED [None]
  - BLOOD URINE PRESENT [None]
  - DRUG ADMINISTRATION ERROR [None]
  - HAEMOGLOBINURIA [None]
  - HAEMOLYTIC TRANSFUSION REACTION [None]
  - RED BLOOD CELL SPHEROCYTES PRESENT [None]
  - RENAL FAILURE [None]
